FAERS Safety Report 23217327 (Version 2)
Quarter: 2023Q4

REPORT INFORMATION
  Report Type: Spontaneous
  Country: US (occurrence: US)
  Receive Date: 20231122
  Receipt Date: 20231228
  Transmission Date: 20240110
  Serious: No
  Sender: FDA-Public Use
  Company Number: US-SA-SAC20231120000554

PATIENT
  Age: 62 Year
  Sex: Female

DRUGS (2)
  1. DUPIXENT [Suspect]
     Active Substance: DUPILUMAB
     Indication: Asthma
     Dosage: 600 MG, 1X
     Route: 058
     Dates: start: 20231007, end: 20231007
  2. DUPIXENT [Suspect]
     Active Substance: DUPILUMAB
     Dosage: 300 MG, QOW
     Route: 058
     Dates: start: 2023

REACTIONS (6)
  - Injection site pain [Unknown]
  - Accidental exposure to product [Unknown]
  - Alopecia [Recovering/Resolving]
  - Eye pruritus [Unknown]
  - Eye inflammation [Unknown]
  - Dry eye [Unknown]

NARRATIVE: CASE EVENT DATE: 20230101
